FAERS Safety Report 7280911-2 (Version None)
Quarter: 2011Q1

REPORT INFORMATION
  Report Type: 
  Country: None (occurrence: None)
  Receive Date: 20110208
  Receipt Date: 20110202
  Transmission Date: 20110831
  Serious: Yes (Other)
  Sender: FDA-Public Use
  Company Number: US-ALEXION-A201000692

PATIENT
  Sex: Female

DRUGS (7)
  1. TEMODAR [Suspect]
     Dosage: 225 MG QD, FOR 5 DAYS, QMONTH
  2. TAXOL [Suspect]
     Indication: MALIGNANT MELANOMA
  3. OSCAL                              /00108001/ [Concomitant]
     Dosage: UNK
     Route: 048
  4. FOLIC ACID [Concomitant]
     Dosage: UNK
     Route: 048
  5. SOLIRIS [Suspect]
     Indication: PAROXYSMAL NOCTURNAL HAEMOGLOBINURIA
     Dosage: 900 MG, Q2W
     Route: 042
     Dates: end: 20110119
  6. LEXAPRO [Concomitant]
     Dosage: UNK
     Route: 048
  7. ASPIRIN [Concomitant]
     Dosage: UNK
     Route: 048

REACTIONS (9)
  - ALOPECIA [None]
  - FATIGUE [None]
  - METASTASES TO LIVER [None]
  - HYPOAESTHESIA [None]
  - HAEMOGLOBIN DECREASED [None]
  - METASTATIC OCULAR MELANOMA [None]
  - CHROMATURIA [None]
  - DEHYDRATION [None]
  - DYSPNOEA EXERTIONAL [None]
